FAERS Safety Report 9770391 (Version 1)
Quarter: 2013Q4

REPORT INFORMATION
  Report Type: Spontaneous
  Country: IT (occurrence: IT)
  Receive Date: 20131218
  Receipt Date: 20131218
  Transmission Date: 20140711
  Serious: Yes (Other)
  Sender: FDA-Public Use
  Company Number: IT-ASTRAZENECA-2013SE90578

PATIENT
  Age: 50 Year
  Sex: Female

DRUGS (2)
  1. SEROQUEL [Suspect]
     Dates: start: 20121017, end: 20121017
  2. TACHIPIRINA [Suspect]

REACTIONS (2)
  - Sopor [Unknown]
  - Wrong drug administered [Unknown]
